FAERS Safety Report 6600823-4 (Version None)
Quarter: 2010Q1

REPORT INFORMATION
  Report Type: 
  Country: None (occurrence: None)
  Receive Date: 20100223
  Receipt Date: 20100223
  Transmission Date: 20100710
  Serious: No
  Sender: FDA-Public Use
  Company Number: None

PATIENT
  Sex: Female
  Weight: 83.9154 kg

DRUGS (2)
  1. LAMOTRIGINE [Suspect]
     Indication: MOOD ALTERED
     Dosage: 200MG 1 PO
     Route: 048
     Dates: start: 20080901, end: 20081027
  2. LAMOTRIGINE [Suspect]
     Indication: MOOD ALTERED
     Dosage: 200MG 1 PO
     Route: 048
     Dates: start: 20100221, end: 20100222

REACTIONS (7)
  - CRYING [None]
  - DISORIENTATION [None]
  - FATIGUE [None]
  - FEELING ABNORMAL [None]
  - HEADACHE [None]
  - IRRITABILITY [None]
  - PRODUCT SUBSTITUTION ISSUE [None]
